FAERS Safety Report 8419838-9 (Version None)
Quarter: 2012Q2

REPORT INFORMATION
  Report Type: 
  Country: None (occurrence: None)
  Receive Date: 20120607
  Receipt Date: 20120529
  Transmission Date: 20120825
  Serious: Yes (Other)
  Sender: FDA-Public Use
  Company Number: JP-ALLERGAN-1207791US

PATIENT
  Age: 70 Year
  Sex: Female

DRUGS (1)
  1. BOTOX [Suspect]
     Indication: MUSCLE SPASMS
     Dosage: 300 UNITS, QD
     Route: 030
     Dates: start: 20120327, end: 20120327

REACTIONS (7)
  - FALL [None]
  - ASTHENIA [None]
  - BLOOD CREATINE PHOSPHOKINASE ABNORMAL [None]
  - DYSARTHRIA [None]
  - RASH [None]
  - BLOOD LACTATE DEHYDROGENASE ABNORMAL [None]
  - ARTHRALGIA [None]
